FAERS Safety Report 13044457 (Version 1)
Quarter: 2016Q4

REPORT INFORMATION
  Report Type: Spontaneous
  Country: AR (occurrence: AR)
  Receive Date: 20161220
  Receipt Date: 20161220
  Transmission Date: 20170207
  Serious: Yes (Other)
  Sender: FDA-Public Use
  Company Number: AR-ACCORD-046642

PATIENT
  Age: 80 Year
  Sex: Male

DRUGS (1)
  1. CARBIDOPA/LEVODOPA [Suspect]
     Active Substance: CARBIDOPA\LEVODOPA
     Indication: PARKINSON^S DISEASE
     Dosage: HIGHER DOSES; REACHING 4 TABLETS A DAY

REACTIONS (3)
  - Intentional product use issue [None]
  - Oromandibular dystonia [Recovering/Resolving]
  - Intentional product misuse [Unknown]
